FAERS Safety Report 7691938-0 (Version None)
Quarter: 2011Q3

REPORT INFORMATION
  Report Type: 
  Country: None (occurrence: None)
  Receive Date: 20110818
  Receipt Date: 20110815
  Transmission Date: 20111222
  Serious: Yes (Other)
  Sender: FDA-Public Use
  Company Number: IT-TEVA-296674ISR

PATIENT
  Age: 6 Year
  Sex: Male

DRUGS (2)
  1. TEMOZOLOMIDE [Suspect]
  2. IMATINIB MESYLATE [Suspect]

REACTIONS (1)
  - VENTRICULAR HYPOKINESIA [None]
